FAERS Safety Report 5000856-8 (Version None)
Quarter: 2006Q2

REPORT INFORMATION
  Report Type: 
  Country: None (occurrence: None)
  Receive Date: 20060512
  Receipt Date: 20050414
  Transmission Date: 20061013
  Serious: Yes (Hospitalization)
  Sender: FDA-Public Use
  Company Number: US-MERCK-0504USA03055

PATIENT
  Age: 89 Year
  Sex: Female
  Weight: 59 kg

DRUGS (1)
  1. VIOXX [Suspect]
     Indication: ARTHRALGIA
     Route: 048
     Dates: start: 20020101, end: 20040101

REACTIONS (5)
  - CEREBROVASCULAR ACCIDENT [None]
  - HYPERTENSION [None]
  - INJURY [None]
  - RENAL DISORDER [None]
  - THROMBOSIS [None]
